FAERS Safety Report 24392547 (Version 1)
Quarter: 2024Q4

REPORT INFORMATION
  Report Type: Spontaneous
  Country: AT (occurrence: AT)
  Receive Date: 20241003
  Receipt Date: 20241003
  Transmission Date: 20250115
  Serious: Yes (Other)
  Sender: CSL BEHRING
  Company Number: AT-BEH-2024179562

PATIENT
  Sex: Male

DRUGS (2)
  1. PRIVIGEN [Suspect]
     Active Substance: HUMAN IMMUNOGLOBULIN G
     Indication: Encephalitis
     Dosage: 2 DF OVER 5 DAYS
     Route: 065
     Dates: start: 2023
  2. PRIVIGEN [Suspect]
     Active Substance: HUMAN IMMUNOGLOBULIN G
     Indication: Off label use
     Dosage: 1 MG/1KG BODY WEIGHT
     Route: 065
     Dates: start: 202408

REACTIONS (11)
  - Necrotising myositis [Unknown]
  - Off label use [Unknown]
  - Symptom recurrence [Unknown]
  - Axonal neuropathy [Unknown]
  - Restlessness [Unknown]
  - Disturbance in attention [Unknown]
  - Mobility decreased [Unknown]
  - Gait disturbance [Unknown]
  - Dizziness [Unknown]
  - Anti-SRP antibody positive [Unknown]
  - Blood creatine phosphokinase increased [Unknown]

NARRATIVE: CASE EVENT DATE: 20230101
